FAERS Safety Report 5779322-8 (Version None)
Quarter: 2008Q2

REPORT INFORMATION
  Report Type: 
  Country: None (occurrence: None)
  Receive Date: 20080619
  Receipt Date: 20070919
  Transmission Date: 20081010
  Serious: No
  Sender: FDA-Public Use
  Company Number: US-ASTRAZENECA-2007UW22054

PATIENT
  Age: 66 Year
  Sex: Male
  Weight: 59 kg

DRUGS (14)
  1. ATACAND [Suspect]
     Indication: BLOOD PRESSURE INCREASED
     Route: 048
     Dates: start: 20050101
  2. ATACAND [Suspect]
     Route: 048
  3. ATACAND [Suspect]
     Route: 048
  4. CYCLOSPORINE [Concomitant]
  5. CELLCEPT [Concomitant]
  6. PREDNISONE TAB [Concomitant]
  7. ZOLOFT [Concomitant]
  8. KLOR-CON [Concomitant]
  9. PRAVACHOL [Concomitant]
  10. AMBIEN [Concomitant]
  11. PEPCID [Concomitant]
  12. ASTELIN [Concomitant]
  13. MITOMYCIN [Concomitant]
  14. BLADDER INFUSIONS EVERY FEW MONTHS [Concomitant]

REACTIONS (1)
  - BLOOD PRESSURE INCREASED [None]
